FAERS Safety Report 14262935 (Version 3)
Quarter: 2018Q1

REPORT INFORMATION
  Report Type: Report from Study
  Country: US (occurrence: US)
  Receive Date: 20171208
  Receipt Date: 20180117
  Transmission Date: 20180508
  Serious: Yes (Hospitalization, Other)
  Sender: FDA-Public Use
  Company Number: US-TEVA-2017-US-831421

PATIENT
  Age: 60 Year
  Sex: Female

DRUGS (8)
  1. ENBRACE HR [Concomitant]
     Active Substance: 1,2-DOCOSAHEXANOYL-SN-GLYCERO-3-PHOSPHOSERINE CALCIUM\1,2-ICOSAPENTOYL-SN-GLYCERO-3-PHOSPHOSERINE CALCIUM\BETAINE\COBAMAMIDE\COCARBOXYLASE\FERROUS CYSTEINE GLYCINATE\FLAVIN ADENINE DINUCLEOTIDE\FOLIC ACID\LEUCOVORIN\LEVOMEFOLATE MAGNESIUM\MAGNESIUM ASCORBATE\MAGNESIUM L-THREONATE\NADH\PHOSPHATIDYL S
     Route: 065
  2. BENZTROPINE [Concomitant]
     Active Substance: BENZTROPINE
     Route: 065
  3. CHOLECALCIFEROL [Concomitant]
     Active Substance: CHOLECALCIFEROL
     Route: 065
  4. CLOZAPINE. [Suspect]
     Active Substance: CLOZAPINE
     Route: 048
     Dates: start: 20170921, end: 20171128
  5. CLOZAPINE. [Suspect]
     Active Substance: CLOZAPINE
     Route: 048
  6. COLACE [Concomitant]
     Active Substance: DOCUSATE SODIUM
     Route: 065
  7. METFORMIN [Concomitant]
     Active Substance: METFORMIN HYDROCHLORIDE
     Route: 065
  8. MIRALAX [Concomitant]
     Active Substance: POLYETHYLENE GLYCOL 3350
     Route: 065

REACTIONS (2)
  - Pyrexia [Unknown]
  - Agranulocytosis [Recovered/Resolved]

NARRATIVE: CASE EVENT DATE: 20171129
